FAERS Safety Report 10227650 (Version 1)
Quarter: 2014Q2

REPORT INFORMATION
  Report Type: Spontaneous
  Country: US (occurrence: None)
  Receive Date: 20140609
  Receipt Date: 20140609
  Transmission Date: 20141212
  Serious: No
  Sender: FDA-Public Use
  Company Number: None

PATIENT
  Age: 33 Year
  Sex: Female
  Weight: 74.84 kg

DRUGS (2)
  1. BUPROPION SR 159MG [Suspect]
     Indication: ANXIETY
     Dosage: ONE PILL TWICE DAILY, TAKEN BY MOUTH 30 DAY SUPPLY
     Route: 048
  2. BUPROPION SR 159MG [Suspect]
     Indication: DEPRESSION
     Dosage: ONE PILL TWICE DAILY, TAKEN BY MOUTH 30 DAY SUPPLY
     Route: 048

REACTIONS (4)
  - Alopecia [None]
  - Madarosis [None]
  - Madarosis [None]
  - Alopecia [None]
